FAERS Safety Report 17062697 (Version 1)
Quarter: 2019Q4

REPORT INFORMATION
  Report Type: Spontaneous
  Country: US (occurrence: US)
  Receive Date: 20191122
  Receipt Date: 20191122
  Transmission Date: 20200122
  Serious: Yes (Death)
  Sender: FDA-Public Use
  Company Number: US-HBP-2019US019840

PATIENT
  Sex: Male

DRUGS (9)
  1. BETAMETHASONE DIPROPIONATE. [Concomitant]
     Active Substance: BETAMETHASONE DIPROPIONATE
  2. TYLENOL [Concomitant]
     Active Substance: ACETAMINOPHEN
  3. VALCHLOR [Suspect]
     Active Substance: MECHLORETHAMINE
     Indication: CUTANEOUS T-CELL LYMPHOMA
     Dosage: UNK, QD
     Route: 061
     Dates: start: 20170602, end: 20191106
  4. COZAAR [Concomitant]
     Active Substance: LOSARTAN POTASSIUM
  5. CLOBETASOL [Concomitant]
     Active Substance: CLOBETASOL
  6. ALLOPURINOL. [Concomitant]
     Active Substance: ALLOPURINOL
  7. TRIAMCINOLONE ACETONIDE. [Concomitant]
     Active Substance: TRIAMCINOLONE ACETONIDE
  8. HYDROCORTISONE-ALOE [Concomitant]
  9. MOTRIN IB [Concomitant]
     Active Substance: IBUPROFEN

REACTIONS (1)
  - Death [Fatal]
